FAERS Safety Report 8563464-8 (Version None)
Quarter: 2012Q3

REPORT INFORMATION
  Report Type: 
  Country: None (occurrence: None)
  Receive Date: 20120802
  Receipt Date: 20120727
  Transmission Date: 20120928
  Serious: Yes (Other)
  Sender: FDA-Public Use
  Company Number: GB-009507513-1207GBR012607

PATIENT

DRUGS (3)
  1. TIMOLOL MALEATE [Suspect]
     Indication: GLAUCOMA
     Dosage: UNK, QD
     Route: 047
     Dates: start: 20120401, end: 20120701
  2. XALATAN [Concomitant]
     Indication: GLAUCOMA
     Dosage: UNK
  3. LATANOPROST [Suspect]
     Indication: GLAUCOMA
     Dosage: UNK, QD
     Route: 047
     Dates: start: 20120401, end: 20120701

REACTIONS (2)
  - PRODUCT SUBSTITUTION ISSUE [None]
  - INTRAOCULAR PRESSURE INCREASED [None]
